FAERS Safety Report 9182656 (Version 2)
Quarter: 2013Q2

REPORT INFORMATION
  Report Type: Spontaneous
  Country: JP (occurrence: JP)
  Receive Date: 20130322
  Receipt Date: 20130404
  Transmission Date: 20140414
  Serious: Yes (Other)
  Sender: FDA-Public Use
  Company Number: PHHY2013JP027762

PATIENT
  Age: 69 Year
  Sex: Male

DRUGS (6)
  1. CICLOSPORIN [Suspect]
     Indication: MICROSCOPIC POLYANGIITIS
     Route: 048
  2. PREDNISOLONE [Suspect]
     Indication: MICROSCOPIC POLYANGIITIS
     Dosage: 40 MG, UNK
  3. PREDNISOLONE [Suspect]
     Dosage: 30 MG, UNK
  4. CYCLOPHOSPHAMIDE [Suspect]
     Indication: MICROSCOPIC POLYANGIITIS
  5. AZATHIOPRINE [Suspect]
     Indication: MICROSCOPIC POLYANGIITIS
  6. METHYLPREDNISOLONE [Suspect]
     Indication: MICROSCOPIC POLYANGIITIS

REACTIONS (4)
  - Water intoxication [Unknown]
  - Substance-induced psychotic disorder [Unknown]
  - Disturbance in attention [Unknown]
  - Pancytopenia [Unknown]
